FAERS Safety Report 9882613 (Version 1)
Quarter: 2014Q1

REPORT INFORMATION
  Report Type: Spontaneous
  Country: US (occurrence: US)
  Receive Date: 20140207
  Receipt Date: 20140207
  Transmission Date: 20141002
  Serious: No
  Sender: FDA-Public Use
  Company Number: US-B.I. PHARMACEUTICALS,INC./RIDGEFIELD-2013-BI-42472BP

PATIENT
  Sex: 0

DRUGS (1)
  1. TRADJENTA [Suspect]

REACTIONS (2)
  - Dysphagia [Unknown]
  - Drug administration error [Unknown]
